FAERS Safety Report 6693348-1 (Version None)
Quarter: 2010Q2

REPORT INFORMATION
  Report Type: 
  Country: None (occurrence: None)
  Receive Date: 20100420
  Receipt Date: 20100405
  Transmission Date: 20101027
  Serious: Yes (Death, Other)
  Sender: FDA-Public Use
  Company Number: MC201000114

PATIENT

DRUGS (3)
  1. ANGIOMAX [Suspect]
     Indication: PERCUTANEOUS CORONARY INTERVENTION
  2. HEPARIN [Suspect]
     Indication: PERCUTANEOUS CORONARY INTERVENTION
  3. PLATELET AGGREGATION INHIBITORS EXCL. HEPARIN () [Suspect]
     Indication: PERCUTANEOUS CORONARY INTERVENTION

REACTIONS (4)
  - ANGIOPATHY [None]
  - HAEMORRHAGE [None]
  - MYOCARDIAL ISCHAEMIA [None]
  - PROCEDURAL COMPLICATION [None]
